FAERS Safety Report 25368622 (Version 1)
Quarter: 2025Q2

REPORT INFORMATION
  Report Type: Report from Study
  Country: US (occurrence: US)
  Receive Date: 20250528
  Receipt Date: 20250528
  Transmission Date: 20250716
  Serious: Yes (Hospitalization)
  Sender: ABBVIE
  Company Number: US-ABBVIE-6296227

PATIENT
  Sex: Female

DRUGS (9)
  1. IMBRUVICA [Suspect]
     Active Substance: IBRUTINIB
     Indication: Waldenstrom^s macroglobulinaemia
     Route: 048
  2. Nebivolol HCl Oral Tablet 10 MG [Concomitant]
     Indication: Product used for unknown indication
  3. Losartan Potassium Oral Tablet 100 [Concomitant]
     Indication: Product used for unknown indication
  4. Pantoprazole Sodium Oral Tablet Del [Concomitant]
     Indication: Product used for unknown indication
  5. Famotidine Oral Tablet 20 MG [Concomitant]
     Indication: Product used for unknown indication
  6. buPROPion HCl ER (SR) Oral Tablet E [Concomitant]
     Indication: Product used for unknown indication
  7. Amoxicillin Oral Capsule 500 MG [Concomitant]
     Indication: Product used for unknown indication
  8. Atorvastatin Calcium Oral Tablet 10 [Concomitant]
     Indication: Product used for unknown indication
  9. amLODIPine Besylate Oral Tablet 10 [Concomitant]
     Indication: Product used for unknown indication

REACTIONS (2)
  - Cataract [Not Recovered/Not Resolved]
  - Glaucoma [Not Recovered/Not Resolved]
